FAERS Safety Report 12055236 (Version 1)
Quarter: 2016Q1

REPORT INFORMATION
  Report Type: Spontaneous
  Country: FR (occurrence: FR)
  Receive Date: 20160209
  Receipt Date: 20160209
  Transmission Date: 20160526
  Serious: Yes (Death)
  Sender: FDA-Public Use
  Company Number: FR-JNJFOC-20160205614

PATIENT
  Age: 56 Year
  Sex: Female

DRUGS (2)
  1. YONDELIS [Suspect]
     Active Substance: TRABECTEDIN
     Indication: OVARIAN CANCER RECURRENT
     Dosage: THIRD LINE CYCLE 1
     Route: 065
     Dates: start: 20160112
  2. DOXORUBICIN HYDROCHLORIDE. [Suspect]
     Active Substance: DOXORUBICIN HYDROCHLORIDE
     Indication: OVARIAN CANCER RECURRENT
     Dosage: THIRD LINE CYCLE 1
     Route: 065
     Dates: start: 20160112

REACTIONS (2)
  - Thrombocytopenia [Fatal]
  - Neutropenia [Fatal]
